FAERS Safety Report 5199207-8 (Version None)
Quarter: 2007Q1

REPORT INFORMATION
  Report Type: 
  Country: None (occurrence: None)
  Receive Date: 20070104
  Receipt Date: 20061214
  Transmission Date: 20070707
  Serious: Yes (Hospitalization)
  Sender: FDA-Public Use
  Company Number: BE-PFIZER INC-2006149153

PATIENT
  Sex: Male
  Weight: 83 kg

DRUGS (6)
  1. XALATAN [Suspect]
     Indication: GLAUCOMA
     Route: 047
     Dates: start: 20060410, end: 20061020
  2. XALATAN [Suspect]
     Indication: OPEN ANGLE GLAUCOMA
  3. OMIC [Concomitant]
     Route: 048
  4. SPIRIVA ^PFIZER^ [Concomitant]
     Route: 055
  5. DUOVENT [Concomitant]
     Route: 055
  6. SYMBICORT [Concomitant]
     Route: 055

REACTIONS (4)
  - DYSPNOEA [None]
  - LACRIMATION INCREASED [None]
  - LUNG DISORDER [None]
  - RHINORRHOEA [None]
